FAERS Safety Report 6841663-0 (Version None)
Quarter: 2010Q3

REPORT INFORMATION
  Report Type: 
  Country: None (occurrence: None)
  Receive Date: 20100714
  Receipt Date: 20071012
  Transmission Date: 20110219
  Serious: No
  Sender: FDA-Public Use
  Company Number: US-PFIZER INC-2007057390

PATIENT
  Sex: Female
  Weight: 95 kg

DRUGS (10)
  1. CHANTIX [Suspect]
     Indication: SMOKING CESSATION THERAPY
     Route: 048
     Dates: start: 20070609
  2. LOTREL [Concomitant]
  3. ACETYLSALICYLIC ACID [Concomitant]
  4. FOLIC ACID [Concomitant]
  5. METOLAZONE [Concomitant]
  6. PLAVIX [Concomitant]
  7. POTASSIUM CHLORIDE [Concomitant]
  8. LANTUS [Concomitant]
  9. ALISKIREN [Concomitant]
  10. BIDIL [Concomitant]

REACTIONS (1)
  - DRUG INEFFECTIVE [None]
